FAERS Safety Report 5046866-6 (Version None)
Quarter: 2006Q3

REPORT INFORMATION
  Report Type: 
  Country: None (occurrence: None)
  Receive Date: 20060705
  Receipt Date: 20060705
  Transmission Date: 20061208
  Serious: Yes (Other)
  Sender: FDA-Public Use
  Company Number: None

PATIENT
  Age: 71 Year
  Sex: Female
  Weight: 119 kg

DRUGS (1)
  1. LEVAQUIN [Suspect]
     Indication: ESCHERICHIA URINARY TRACT INFECTION
     Dosage: 500 MG QDAY IV [1 DOSE]
     Route: 042
     Dates: start: 20060702, end: 20060702

REACTIONS (2)
  - RASH ERYTHEMATOUS [None]
  - URTICARIA [None]
